FAERS Safety Report 6873299-X (Version None)
Quarter: 2010Q3

REPORT INFORMATION
  Report Type: 
  Country: None (occurrence: None)
  Receive Date: 20100721
  Receipt Date: 20100709
  Transmission Date: 20110219
  Serious: Yes (Death, Life-Threatening, Hospitalization, Other)
  Sender: FDA-Public Use
  Company Number: 2009AC000428

PATIENT
  Age: 51 Year
  Sex: Female
  Weight: 99.7913 kg

DRUGS (19)
  1. DIGOXIN [Suspect]
     Dosage: 0.250 MG; PO
     Route: 048
     Dates: start: 20070910, end: 20071101
  2. DIGOXIN [Suspect]
     Dosage: 0.250 MG; QD; PO
     Route: 048
     Dates: start: 19990101
  3. DIGOXIN [Suspect]
     Dates: start: 20051201, end: 20051201
  4. GLYBURIDE [Concomitant]
  5. PREDNISONE [Concomitant]
  6. METHOTREXATE [Concomitant]
  7. MEVACOR [Concomitant]
  8. PRILOSEC [Concomitant]
  9. COUMADIN [Concomitant]
  10. QUINIDINE HCL [Concomitant]
  11. TOPROL-XL [Concomitant]
  12. PACERONE [Concomitant]
  13. ATENOLOL [Concomitant]
  14. TAMBOCOR [Concomitant]
  15. NORVASC [Concomitant]
  16. QIUNIDEX [Concomitant]
  17. LASIX [Concomitant]
  18. CARDIZEM [Concomitant]
  19. ZITHROMAX [Concomitant]

REACTIONS (58)
  - ABDOMINAL DISTENSION [None]
  - ABSCESS [None]
  - ALOPECIA [None]
  - AMNESIA [None]
  - ANAEMIA [None]
  - ANXIETY [None]
  - APHTHOUS STOMATITIS [None]
  - ARTHRALGIA [None]
  - ATAXIA [None]
  - ATRIAL FIBRILLATION [None]
  - ATRIOVENTRICULAR BLOCK FIRST DEGREE [None]
  - BLOOD GLUCOSE INCREASED [None]
  - BLOOD HOMOCYSTEINE INCREASED [None]
  - BLOOD THYROID STIMULATING HORMONE DECREASED [None]
  - BRONCHITIS [None]
  - CARDIAC FAILURE CONGESTIVE [None]
  - CARDIOLIPIN ANTIBODY POSITIVE [None]
  - CHOLELITHIASIS [None]
  - CONTINUOUS HAEMODIAFILTRATION [None]
  - CONVULSION [None]
  - DEEP VEIN THROMBOSIS [None]
  - DEPRESSION [None]
  - DIARRHOEA [None]
  - DRY SKIN [None]
  - ECONOMIC PROBLEM [None]
  - EPISTAXIS [None]
  - FALL [None]
  - HAEMATOCRIT DECREASED [None]
  - HAEMOGLOBIN DECREASED [None]
  - HEADACHE [None]
  - HEPATIC CIRRHOSIS [None]
  - HEPATIC STEATOSIS [None]
  - ILL-DEFINED DISORDER [None]
  - INJURY [None]
  - JOINT STIFFNESS [None]
  - MITRAL VALVE CALCIFICATION [None]
  - MITRAL VALVE INCOMPETENCE [None]
  - MULTI-ORGAN FAILURE [None]
  - MUSCLE FATIGUE [None]
  - MYALGIA [None]
  - NIGHT SWEATS [None]
  - NOCTURIA [None]
  - PAIN IN EXTREMITY [None]
  - PERICARDIAL EFFUSION [None]
  - PULMONARY EMBOLISM [None]
  - PULMONARY HYPERTENSION [None]
  - PULMONARY VALVE INCOMPETENCE [None]
  - RED BLOOD CELL COUNT DECREASED [None]
  - RENAL FAILURE [None]
  - SEPTIC SHOCK [None]
  - SUBDURAL EMPYEMA [None]
  - SUPRAVENTRICULAR EXTRASYSTOLES [None]
  - TEMPERATURE INTOLERANCE [None]
  - THYROXINE FREE INCREASED [None]
  - TREATMENT NONCOMPLIANCE [None]
  - TRICUSPID VALVE INCOMPETENCE [None]
  - URINARY TRACT INFECTION [None]
  - VERTIGO [None]
